FAERS Safety Report 12642212 (Version 4)
Quarter: 2016Q4

REPORT INFORMATION
  Report Type: Spontaneous
  Country: US (occurrence: US)
  Receive Date: 20160810
  Receipt Date: 20161025
  Transmission Date: 20170207
  Serious: Yes (Hospitalization, Other)
  Sender: FDA-Public Use
  Company Number: US-PFIZER INC-2016376884

PATIENT
  Age: 57 Year
  Sex: Female

DRUGS (4)
  1. SOMA [Interacting]
     Active Substance: CARISOPRODOL
     Indication: MYALGIA
     Dosage: UNK
     Route: 048
     Dates: start: 20160704
  2. AMBIEN [Interacting]
     Active Substance: ZOLPIDEM TARTRATE
     Dosage: UNK
  3. XANAX [Suspect]
     Active Substance: ALPRAZOLAM
     Dosage: UNK
  4. ATIVAN [Interacting]
     Active Substance: LORAZEPAM
     Indication: MYALGIA
     Dosage: UNK
     Route: 048
     Dates: start: 20160704

REACTIONS (8)
  - Hypotonia [Unknown]
  - Coma [Recovering/Resolving]
  - Drug abuse [Unknown]
  - Abasia [Recovering/Resolving]
  - Drug interaction [Unknown]
  - Malaise [Unknown]
  - Dysphagia [Recovering/Resolving]
  - Seizure [Not Recovered/Not Resolved]

NARRATIVE: CASE EVENT DATE: 20160704
